FAERS Safety Report 8936507 (Version 1)
Quarter: 2012Q4

REPORT INFORMATION
  Report Type: Report from Study
  Country: SE (occurrence: SE)
  Receive Date: 20121130
  Receipt Date: 20121130
  Transmission Date: 20130627
  Serious: Yes (Death, Hospitalization, Other)
  Sender: FDA-Public Use
  Company Number: SE-TEVA-373062USA

PATIENT
  Age: 78 Year
  Sex: Female
  Weight: 61.4 kg

DRUGS (6)
  1. TREANDA [Suspect]
     Indication: NON-HODGKIN^S LYMPHOMA
     Route: 042
     Dates: start: 20120425, end: 20120913
  2. ALLOPURINOL [Concomitant]
     Indication: NON-HODGKIN^S LYMPHOMA
     Dates: start: 20120429
  3. DIAZEPAM [Concomitant]
     Indication: SEDATION
     Dates: start: 20120429
  4. CIPROFLOXACIN [Concomitant]
     Indication: PYREXIA
     Dates: start: 20120524
  5. VALTREX [Concomitant]
     Indication: HERPES VIRUS INFECTION
     Dates: start: 20120525
  6. COCILLANA [Concomitant]
     Indication: BRONCHITIS
     Dates: start: 20120506

REACTIONS (3)
  - Adenocarcinoma [Unknown]
  - Hypokalaemia [Unknown]
  - Death [Fatal]
